FAERS Safety Report 23474764 (Version 1)
Quarter: 2024Q1

REPORT INFORMATION
  Report Type: Report from Study
  Country: US (occurrence: US)
  Receive Date: 20240204
  Receipt Date: 20240204
  Transmission Date: 20240409
  Serious: Yes (Other)
  Sender: FDA-Public Use
  Company Number: US-EXELIXIS-CABO-23065312

PATIENT
  Sex: Male

DRUGS (1)
  1. CABOMETYX [Suspect]
     Active Substance: CABOZANTINIB S-MALATE
     Indication: Renal cancer
     Dosage: 40 MG, QD
     Route: 048
     Dates: end: 20230720

REACTIONS (13)
  - Metastases to lung [Unknown]
  - Swelling [Recovering/Resolving]
  - Skin exfoliation [Recovering/Resolving]
  - Hyperkeratosis [Recovering/Resolving]
  - Glossodynia [Recovering/Resolving]
  - Fatigue [Recovering/Resolving]
  - Stomatitis [Unknown]
  - Blood pressure increased [Recovering/Resolving]
  - Dry skin [Recovering/Resolving]
  - Pruritus [Recovering/Resolving]
  - Abdominal discomfort [Recovering/Resolving]
  - Decreased appetite [Recovering/Resolving]
  - Asthenia [Recovering/Resolving]
